FAERS Safety Report 23768093 (Version 1)
Quarter: 2024Q2

REPORT INFORMATION
  Report Type: Spontaneous
  Country: US (occurrence: None)
  Receive Date: 20240419
  Receipt Date: 20240419
  Transmission Date: 20240716
  Serious: Yes (Other)
  Sender: FDA-Public Use
  Company Number: None

PATIENT
  Age: 37 Year
  Sex: Female
  Weight: 65.25 kg

DRUGS (1)
  1. HERBALS\MITRAGYNINE [Suspect]
     Active Substance: HERBALS\MITRAGYNINE

REACTIONS (7)
  - Product advertising issue [None]
  - Drug dependence [None]
  - Suicidal ideation [None]
  - Dry skin [None]
  - Muscular weakness [None]
  - Alopecia [None]
  - Drug tolerance [None]

NARRATIVE: CASE EVENT DATE: 20231101
